FAERS Safety Report 6449399-5 (Version None)
Quarter: 2009Q4

REPORT INFORMATION
  Report Type: 
  Country: None (occurrence: None)
  Receive Date: 20091120
  Receipt Date: 20091112
  Transmission Date: 20100525
  Serious: Yes (Hospitalization)
  Sender: FDA-Public Use
  Company Number: DE-JNJFOC-20091103427

PATIENT
  Age: 82 Year
  Sex: Male

DRUGS (8)
  1. DIPIPERON [Suspect]
     Route: 048
     Dates: start: 20090721
  2. DIPIPERON [Suspect]
     Indication: DRUG USE FOR UNKNOWN INDICATION
     Route: 048
     Dates: start: 20090721
  3. RISPERDAL [Interacting]
     Route: 048
     Dates: start: 20090721
  4. RISPERDAL [Interacting]
     Indication: DRUG USE FOR UNKNOWN INDICATION
     Route: 048
     Dates: start: 20090721
  5. ARICEPT [Interacting]
     Route: 048
     Dates: start: 20090727, end: 20090805
  6. ARICEPT [Interacting]
     Indication: DRUG USE FOR UNKNOWN INDICATION
     Route: 048
     Dates: start: 20090727, end: 20090805
  7. ASPIRIN [Concomitant]
     Route: 048
  8. HYDROCHLOROTHIAZIDE [Concomitant]
     Route: 048

REACTIONS (2)
  - DRUG INTERACTION [None]
  - SALIVARY HYPERSECRETION [None]
